FAERS Safety Report 6529733-8 (Version None)
Quarter: 2010Q1

REPORT INFORMATION
  Report Type: 
  Country: None (occurrence: None)
  Receive Date: 20100107
  Receipt Date: 20100104
  Transmission Date: 20100710
  Serious: Yes (Other)
  Sender: FDA-Public Use
  Company Number: US-WYE-H12823610

PATIENT
  Age: 61 Year
  Sex: Female
  Weight: 54.03 kg

DRUGS (1)
  1. IBUPROFEN (ADVIL) [Suspect]
     Indication: HEADACHE
     Dosage: 1 LIQUI-GEL X 1
     Route: 048
     Dates: start: 20091224, end: 20091224

REACTIONS (3)
  - ERYTHEMA [None]
  - LIP SWELLING [None]
  - SWOLLEN TONGUE [None]
